FAERS Safety Report 21676979 (Version 3)
Quarter: 2023Q1

REPORT INFORMATION
  Report Type: Report from Study
  Country: US (occurrence: US)
  Receive Date: 20221203
  Receipt Date: 20230106
  Transmission Date: 20230417
  Serious: Yes (Hospitalization)
  Sender: FDA-Public Use
  Company Number: US-REGENERON PHARMACEUTICALS, INC.-2022-145839

PATIENT
  Age: 58 Year
  Sex: Female

DRUGS (21)
  1. REGN-5668 [Suspect]
     Active Substance: REGN-5668
     Indication: Ovarian cancer recurrent
     Dosage: 100 MG, WEEKLY
     Route: 042
     Dates: start: 20221102, end: 20221114
  2. REGN-5668 [Suspect]
     Active Substance: REGN-5668
     Dosage: 100 MG, WEEKLY
     Route: 042
     Dates: start: 20221115
  3. CEMIPLIMAB [Suspect]
     Active Substance: CEMIPLIMAB
     Indication: Ovarian cancer recurrent
     Dosage: 350 MG, Q6W
     Route: 042
     Dates: start: 20221123
  4. ELIQUIS [Concomitant]
     Active Substance: APIXABAN
     Indication: Deep vein thrombosis
     Dosage: 5 MG, BID
     Route: 048
     Dates: start: 20211027
  5. GABAPENTIN [Concomitant]
     Active Substance: GABAPENTIN
     Indication: Neuropathy peripheral
     Dosage: 100 MG, TID
     Route: 048
     Dates: start: 20201013
  6. ALBUTEROL [Concomitant]
     Active Substance: ALBUTEROL
     Indication: Asthma
     Dosage: 90MCG Q6H
     Dates: start: 20191203
  7. ATIVAN [Concomitant]
     Active Substance: LORAZEPAM
     Indication: Anxiety
     Dosage: 0.5 MG Q8H
     Route: 048
     Dates: start: 20191126
  8. DOCUSATE\SENNOSIDES [Concomitant]
     Active Substance: DOCUSATE\SENNOSIDES
     Indication: Constipation
     Dosage: 8.6 MG, BID
     Route: 048
     Dates: start: 20191105, end: 20221113
  9. DOCUSATE\SENNOSIDES [Concomitant]
     Active Substance: DOCUSATE\SENNOSIDES
     Dosage: 8.6 MG. 2 TABS AT BEDTIME
     Route: 048
     Dates: start: 20221114
  10. DOCUSATE\SENNOSIDES [Concomitant]
     Active Substance: DOCUSATE\SENNOSIDES
     Dosage: 8.6 MG. 1 TAB NIGHTLY
     Route: 048
     Dates: start: 20221122, end: 20221125
  11. KETOCONAZOLE [Concomitant]
     Active Substance: KETOCONAZOLE
     Indication: Fungal skin infection
     Dosage: 2 %, QD
     Route: 061
  12. SYMBICORT [Concomitant]
     Active Substance: BUDESONIDE\FORMOTEROL FUMARATE DIHYDRATE
     Indication: Asthma
     Dosage: 160MCG, AS NEEDED
  13. FERROUS SULFATE [Concomitant]
     Active Substance: FERROUS SULFATE
     Indication: Mineral supplementation
     Dosage: 324 MG, BID
     Route: 048
     Dates: start: 20221103, end: 20221111
  14. MAGNESIUM HYDROXIDE;SIMETHICONE [Concomitant]
     Indication: Dyspepsia
     Dosage: 30 ML, Q4H
     Route: 048
     Dates: start: 20221103
  15. RAMELTEON [Concomitant]
     Active Substance: RAMELTEON
     Indication: Insomnia
     Dosage: 8 MG, ONE TAB AT BED TIME
     Route: 048
     Dates: start: 20221031, end: 20221104
  16. DILAUDID [Concomitant]
     Active Substance: HYDROMORPHONE HYDROCHLORIDE
     Indication: Pain
     Dosage: 2 MG, EVERY 4-6 HOURS
     Route: 048
     Dates: start: 20221110, end: 20221111
  17. POLYETHYLENE GLYCOL 3350 [Concomitant]
     Active Substance: POLYETHYLENE GLYCOL 3350
     Indication: Constipation
     Dosage: 17 G, QID
     Route: 048
     Dates: start: 20221110
  18. ACETAMINOPHEN [Concomitant]
     Active Substance: ACETAMINOPHEN
     Indication: Pain
     Dosage: 325 MG, 2 TABS EVERY 6 HOURS
     Route: 048
     Dates: start: 20221103
  19. NALOXONE [Concomitant]
     Active Substance: NALOXONE
     Indication: Prophylaxis
     Dosage: 4 MG, QID
     Route: 045
     Dates: start: 20221110, end: 20221110
  20. FOLIC ACID [Concomitant]
     Active Substance: FOLIC ACID
     Indication: Supplementation therapy
     Dosage: 1 MG, QID
     Route: 048
     Dates: start: 20221012
  21. CARBOXYMETHYLCELLULOSE [Concomitant]
     Active Substance: CARBOXYMETHYLCELLULOSE
     Indication: Dry eye
     Dosage: 1 DROP Q4H
     Route: 047
     Dates: start: 20221103, end: 20221104

REACTIONS (2)
  - Cytokine release syndrome [Recovered/Resolved]
  - Infusion related reaction [Recovered/Resolved]

NARRATIVE: CASE EVENT DATE: 20221114
